FAERS Safety Report 6133746-8 (Version None)
Quarter: 2009Q1

REPORT INFORMATION
  Report Type: 
  Country: None (occurrence: None)
  Receive Date: 20090326
  Receipt Date: 20090318
  Transmission Date: 20090719
  Serious: Yes (Other)
  Sender: FDA-Public Use
  Company Number: JP-JNJFOC-20090305686

PATIENT
  Age: 41 Year
  Sex: Female

DRUGS (13)
  1. TOPINA [Suspect]
     Route: 048
  2. TOPINA [Suspect]
     Indication: LENNOX-GASTAUT SYNDROME
     Route: 048
  3. DEPAKENE [Concomitant]
     Route: 048
  4. ALEVIATIN [Concomitant]
     Route: 048
  5. HYDANTOL [Concomitant]
     Route: 048
  6. RIVOTRIL [Concomitant]
     Route: 048
  7. PHENOBARBITAL TAB [Concomitant]
     Route: 048
  8. BIOTIN [Concomitant]
     Route: 048
  9. FLAVITAN [Concomitant]
     Route: 048
  10. CAFFEINE AND SODIUM BENZOATE [Concomitant]
     Route: 048
  11. CALCIUM LACTATE [Concomitant]
     Route: 048
  12. PURSENNID [Concomitant]
     Route: 048
  13. COLONEL [Concomitant]
     Route: 048

REACTIONS (3)
  - DECREASED APPETITE [None]
  - HYPOKINESIA [None]
  - STATUS EPILEPTICUS [None]
